FAERS Safety Report 15359911 (Version 1)
Quarter: 2018Q3

REPORT INFORMATION
  Report Type: Spontaneous
  Country: US (occurrence: US)
  Receive Date: 20180907
  Receipt Date: 20180907
  Transmission Date: 20181010
  Serious: Yes (Death, Hospitalization, Other)
  Sender: FDA-Public Use
  Company Number: US-LUPIN PHARMACEUTICALS INC.-2018-06195

PATIENT
  Age: 18 Year
  Sex: Male

DRUGS (1)
  1. BUPROPION. [Suspect]
     Active Substance: BUPROPION
     Indication: PRODUCT USED FOR UNKNOWN INDICATION
     Dosage: UNK
     Route: 065

REACTIONS (10)
  - Arrhythmia [Fatal]
  - Coma [Fatal]
  - Electrocardiogram QRS complex prolonged [Fatal]
  - Hypotension [Fatal]
  - Respiratory depression [Fatal]
  - Electrocardiogram QT prolonged [Fatal]
  - Toxicity to various agents [Fatal]
  - Myocardial ischaemia [Fatal]
  - Depressed level of consciousness [Fatal]
  - Metabolic acidosis [Fatal]
